FAERS Safety Report 14317401 (Version 6)
Quarter: 2018Q2

REPORT INFORMATION
  Report Type: Other
  Country: IT (occurrence: IT)
  Receive Date: 20171222
  Receipt Date: 20180422
  Transmission Date: 20180711
  Serious: Yes (Other)
  Sender: FDA-Public Use
  Company Number: IT-APOTEX-2017AP023586

PATIENT
  Age: 86 Year
  Sex: Female

DRUGS (7)
  1. CETIRIZINE [Suspect]
     Active Substance: CETIRIZINE HYDROCHLORIDE
     Indication: PRURITUS
     Dosage: 10 MG, QD
     Route: 048
     Dates: start: 20171022, end: 20171029
  2. CETIRIZINE [Suspect]
     Active Substance: CETIRIZINE HYDROCHLORIDE
     Dosage: 20 MG, UNK
     Route: 065
  3. CARDIOASPIRIN [Concomitant]
     Active Substance: ASPIRIN
     Indication: PRODUCT USED FOR UNKNOWN INDICATION
     Dosage: 100 MG, UNK
     Route: 065
  4. SEREUPIN [Concomitant]
     Active Substance: PAROXETINE HYDROCHLORIDE
     Indication: PRODUCT USED FOR UNKNOWN INDICATION
     Dosage: 20 MG, UNK
     Route: 065
  5. TENORETIC [Concomitant]
     Active Substance: ATENOLOL\CHLORTHALIDONE
     Dosage: 1 DF, UNK
     Route: 048
  6. SEREUPIN [Concomitant]
     Active Substance: PAROXETINE HYDROCHLORIDE
     Dosage: 1 DF, UNK
     Route: 065
  7. TENORETIC [Concomitant]
     Active Substance: ATENOLOL\CHLORTHALIDONE
     Indication: PRODUCT USED FOR UNKNOWN INDICATION
     Dosage: 125 MG, UNK
     Route: 065

REACTIONS (4)
  - Nausea [Recovering/Resolving]
  - Vertigo [Recovering/Resolving]
  - Headache [Recovering/Resolving]
  - Abdominal pain upper [Recovering/Resolving]

NARRATIVE: CASE EVENT DATE: 20171023
